FAERS Safety Report 7656831-8 (Version None)
Quarter: 2011Q3

REPORT INFORMATION
  Report Type: 
  Country: None (occurrence: None)
  Receive Date: 20110804
  Receipt Date: 20110802
  Transmission Date: 20111222
  Serious: Yes (Other)
  Sender: FDA-Public Use
  Company Number: US-PFIZER INC-2008095696

PATIENT
  Sex: Female

DRUGS (8)
  1. PROTONIX [Suspect]
     Indication: GASTROOESOPHAGEAL REFLUX DISEASE
     Dosage: 40 MG, 1X/DAY
     Route: 048
  2. ASPIRIN [Concomitant]
  3. LIPITOR [Suspect]
     Indication: CARDIAC DISORDER
     Dosage: 20 MG, 1X/DAY
     Route: 048
  4. CELEXA [Concomitant]
     Dosage: UNK
  5. PLAVIX [Concomitant]
     Dosage: UNK
  6. PROCARDIA XL [Concomitant]
  7. METOPROLOL [Concomitant]
     Dosage: UNK
  8. TRICOR [Concomitant]
     Dosage: UNK

REACTIONS (6)
  - ASTHENIA [None]
  - BLOOD POTASSIUM INCREASED [None]
  - BLOOD TRIGLYCERIDES INCREASED [None]
  - PALPITATIONS [None]
  - HYPOACUSIS [None]
  - BLOOD POTASSIUM DECREASED [None]
